FAERS Safety Report 23108961 (Version 1)
Quarter: 2023Q4

REPORT INFORMATION
  Report Type: Spontaneous
  Country: US (occurrence: None)
  Receive Date: 20231025
  Receipt Date: 20231025
  Transmission Date: 20240109
  Serious: Yes (Other)
  Sender: FDA-Public Use
  Company Number: None

PATIENT
  Age: 80 Year
  Sex: Female
  Weight: 81 kg

DRUGS (1)
  1. LEQVIO [Suspect]
     Active Substance: INCLISIRAN SODIUM
     Indication: Hypocholesterolaemia
     Route: 058
     Dates: start: 20230927, end: 20231020

REACTIONS (2)
  - Swelling face [None]
  - Lip swelling [None]

NARRATIVE: CASE EVENT DATE: 20230929
